FAERS Safety Report 5050800-2 (Version None)
Quarter: 2006Q3

REPORT INFORMATION
  Report Type: 
  Country: None (occurrence: None)
  Receive Date: 20060711
  Receipt Date: 20060627
  Transmission Date: 20061208
  Serious: Yes (Hospitalization)
  Sender: FDA-Public Use
  Company Number: GXKR2006IL03709

PATIENT
  Age: 38 Year
  Sex: Female

DRUGS (1)
  1. AMIODARONE (NGX) (AMIODARONE) [Suspect]
     Indication: ATRIAL FIBRILLATION
     Dosage: ONCE/SINGLE, INTRAVENOUS
     Route: 042

REACTIONS (18)
  - ACTIVATED PARTIAL THROMBOPLASTIN TIME PROLONGED [None]
  - ASCITES [None]
  - CARDIAC ARREST [None]
  - DILATATION VENTRICULAR [None]
  - HEPATOMEGALY [None]
  - HYPERTHYROIDISM [None]
  - JUGULAR VEIN DISTENSION [None]
  - LEUKOCYTOSIS [None]
  - NEUTROPHILIA [None]
  - OEDEMA PERIPHERAL [None]
  - PNEUMONIA ASPIRATION [None]
  - PROTHROMBIN TIME PROLONGED [None]
  - PULMONARY ARTERIAL PRESSURE INCREASED [None]
  - PULMONARY CONGESTION [None]
  - PYREXIA [None]
  - RALES [None]
  - TRICUSPID VALVE INCOMPETENCE [None]
  - VENTRICULAR DYSFUNCTION [None]
